FAERS Safety Report 11544163 (Version 1)
Quarter: 2015Q3

REPORT INFORMATION
  Report Type: Spontaneous
  Country: US (occurrence: None)
  Receive Date: 20150923
  Receipt Date: 20150923
  Transmission Date: 20151125
  Serious: Yes (Death)
  Sender: FDA-Public Use
  Company Number: None

PATIENT
  Age: 83 Year
  Sex: Male
  Weight: 76 kg

DRUGS (3)
  1. QUETIAPINE [Concomitant]
     Active Substance: QUETIAPINE
  2. RISPERIDONE. [Concomitant]
     Active Substance: RISPERIDONE
  3. FENTANYL TRANSDERMAL SYSTEM [Suspect]
     Active Substance: FENTANYL
     Indication: AGITATION
     Dates: start: 20150812, end: 20150814

REACTIONS (3)
  - Pulseless electrical activity [None]
  - Respiratory arrest [None]
  - Sedation [None]

NARRATIVE: CASE EVENT DATE: 20150814
